FAERS Safety Report 24609955 (Version 2)
Quarter: 2025Q1

REPORT INFORMATION
  Report Type: Report from Study
  Country: US (occurrence: US)
  Receive Date: 20241112
  Receipt Date: 20250304
  Transmission Date: 20250409
  Serious: No
  Sender: SANOFI AVENTIS
  Company Number: US-SA-2024SA323106

PATIENT
  Age: 62 Year
  Sex: Male

DRUGS (2)
  1. DUPILUMAB [Suspect]
     Active Substance: DUPILUMAB
     Indication: Chronic obstructive pulmonary disease
     Route: 058
     Dates: start: 202409, end: 202409
  2. DUPILUMAB [Suspect]
     Active Substance: DUPILUMAB
     Dosage: 300 MG, QOW
     Route: 058
     Dates: start: 20241001

REACTIONS (2)
  - Drug ineffective [Unknown]
  - Incorrect dose administered [Unknown]

NARRATIVE: CASE EVENT DATE: 20240901
